FAERS Safety Report 6409912-0 (Version None)
Quarter: 2009Q4

REPORT INFORMATION
  Report Type: 
  Country: None (occurrence: None)
  Receive Date: 20091022
  Receipt Date: 20091013
  Transmission Date: 20100525
  Serious: Yes (Hospitalization)
  Sender: FDA-Public Use
  Company Number: FR-ASTRAZENECA-2009SE20097

PATIENT
  Age: 83 Year
  Sex: Female

DRUGS (8)
  1. NEXIUM [Suspect]
     Route: 048
     Dates: end: 20090330
  2. DURAGESIC-100 [Suspect]
     Route: 062
     Dates: end: 20090331
  3. KARDEGIC [Concomitant]
     Route: 065
  4. CACIT D3 [Concomitant]
     Route: 065
  5. FORLAX [Concomitant]
     Route: 065
  6. LOXEN [Concomitant]
     Route: 065
  7. ARIXTRA [Concomitant]
     Route: 065
  8. CIBACALCINE [Concomitant]
     Route: 065

REACTIONS (1)
  - CONFUSIONAL STATE [None]
